FAERS Safety Report 12827933 (Version 1)
Quarter: 2016Q4

REPORT INFORMATION
  Report Type: Report from Study
  Country: ZW (occurrence: ZW)
  Receive Date: 20161007
  Receipt Date: 20161007
  Transmission Date: 20170207
  Serious: Yes (Death, Hospitalization, Other)
  Sender: FDA-Public Use
  Company Number: ZW-GILEAD-2016-0231301

PATIENT
  Age: 29 Year
  Sex: Male

DRUGS (5)
  1. BLEOMYCIN [Suspect]
     Active Substance: BLEOMYCIN SULFATE
     Indication: ACQUIRED IMMUNODEFICIENCY SYNDROME
     Dosage: 26.7 UNKNOWN, Q3WK
     Route: 041
     Dates: start: 20160504, end: 20160614
  2. VINCRISTINE [Suspect]
     Active Substance: VINCRISTINE
     Indication: ACQUIRED IMMUNODEFICIENCY SYNDROME
     Dosage: 2 MG, Q3WK
     Route: 041
     Dates: start: 20160504, end: 20160614
  3. EFAVIRENZ/EMTRICITABINE/TENOFOVIR DISOPROXIL FUMARATE [Suspect]
     Active Substance: EFAVIRENZ\EMTRICITABINE\TENOFOVIR DISOPROXIL FUMARATE
     Indication: ACQUIRED IMMUNODEFICIENCY SYNDROME
     Dosage: 1 DF, QD
     Route: 048
     Dates: start: 20150702, end: 20160818
  4. PACLITAXEL. [Suspect]
     Active Substance: PACLITAXEL
     Indication: ACQUIRED IMMUNODEFICIENCY SYNDROME
     Dosage: 181 MG, Q3WK
     Route: 041
     Dates: start: 20150702, end: 20151016
  5. ETOPOSIDE PHOSPHATE [Suspect]
     Active Substance: ETOPOSIDE PHOSPHATE
     Indication: ACQUIRED IMMUNODEFICIENCY SYNDROME
     Dosage: 50 MG, BID
     Route: 048
     Dates: start: 20150215, end: 20160407

REACTIONS (1)
  - Kaposi^s sarcoma [Fatal]

NARRATIVE: CASE EVENT DATE: 20160819
